FAERS Safety Report 18333130 (Version 1)
Quarter: 2020Q4

REPORT INFORMATION
  Report Type: Spontaneous
  Country: IT (occurrence: IT)
  Receive Date: 20201001
  Receipt Date: 20201001
  Transmission Date: 20210113
  Serious: Yes (Life-Threatening, Hospitalization, Other)
  Sender: FDA-Public Use
  Company Number: IT-ACCORD-203732

PATIENT
  Age: 68 Year
  Sex: Male

DRUGS (1)
  1. METHOTREXATE. [Suspect]
     Active Substance: METHOTREXATE
     Indication: RHEUMATOID ARTHRITIS
     Route: 048

REACTIONS (7)
  - Mucosal inflammation [Recovering/Resolving]
  - Inappropriate schedule of product administration [Unknown]
  - Oropharyngeal pain [Recovering/Resolving]
  - Intestinal perforation [Recovering/Resolving]
  - Thrombocytopenia [Recovering/Resolving]
  - Stomatitis [Recovering/Resolving]
  - Toxicity to various agents [Recovering/Resolving]
